FAERS Safety Report 19087441 (Version 1)
Quarter: 2021Q2

REPORT INFORMATION
  Report Type: Spontaneous
  Country: US (occurrence: US)
  Receive Date: 20210402
  Receipt Date: 20210402
  Transmission Date: 20210717
  Serious: Yes (Other)
  Sender: FDA-Public Use
  Company Number: None

PATIENT
  Age: 9 Year
  Sex: Male

DRUGS (1)
  1. NEUTROGENA WET SKIN KIDS BEACH AND POOL SUNSCREEN BROAD SPECTRUM SPF70 PLUS [Suspect]
     Active Substance: AVOBENZONE\HOMOSALATE\OCTISALATE\OCTOCRYLENE\OXYBENZONE
     Indication: PROPHYLAXIS AGAINST SOLAR RADIATION
     Dosage: ?          OTHER STRENGTH:SPF 70;?
     Dates: start: 20210331, end: 20210331

REACTIONS (4)
  - Application site pain [None]
  - Swelling face [None]
  - Periorbital swelling [None]
  - Application site rash [None]

NARRATIVE: CASE EVENT DATE: 20210331
